FAERS Safety Report 6114444-3 (Version None)
Quarter: 2009Q1

REPORT INFORMATION
  Report Type: 
  Country: None (occurrence: None)
  Receive Date: 20090313
  Receipt Date: 20090227
  Transmission Date: 20090719
  Serious: Yes (Other)
  Sender: FDA-Public Use
  Company Number: PHHY2009FR07394

PATIENT
  Sex: Female

DRUGS (1)
  1. GLEEVEC [Suspect]
     Indication: CHONDROMA
     Dosage: UNK

REACTIONS (3)
  - AGRANULOCYTOSIS [None]
  - LUNG DISORDER [None]
  - RASH [None]
